FAERS Safety Report 8459356-5 (Version None)
Quarter: 2012Q2

REPORT INFORMATION
  Report Type: 
  Country: None (occurrence: None)
  Receive Date: 20120622
  Receipt Date: 20120614
  Transmission Date: 20120825
  Serious: Yes (Hospitalization, Other)
  Sender: FDA-Public Use
  Company Number: FI-ABBOTT-12P-055-0946204-00

PATIENT
  Sex: Female

DRUGS (4)
  1. CALCICHEW D3 [Concomitant]
     Indication: OSTEOPOROSIS
  2. MEDICINE TO PROMOTE THE DEVELOPEMENT OF EGG FOLLICLES IN THE OVARIES [Concomitant]
     Indication: PRODUCT USED FOR UNKNOWN INDICATION
  3. HUMIRA [Suspect]
  4. HUMIRA [Suspect]
     Indication: PRODUCT USED FOR UNKNOWN INDICATION

REACTIONS (12)
  - PYREXIA [None]
  - ABDOMINAL PAIN UPPER [None]
  - FREQUENT BOWEL MOVEMENTS [None]
  - VOMITING [None]
  - PREMATURE LABOUR [None]
  - INSOMNIA [None]
  - CONDITION AGGRAVATED [None]
  - GASTRIC DISORDER [None]
  - MALAISE [None]
  - FATIGUE [None]
  - GENERAL PHYSICAL CONDITION ABNORMAL [None]
  - GASTROINTESTINAL INFLAMMATION [None]
